FAERS Safety Report 10205212 (Version 3)
Quarter: 2014Q2

REPORT INFORMATION
  Report Type: Spontaneous
  Country: ES (occurrence: ES)
  Receive Date: 20140529
  Receipt Date: 20140613
  Transmission Date: 20141212
  Serious: Yes (Other)
  Sender: FDA-Public Use
  Company Number: ES-PFIZER INC-2014145517

PATIENT
  Age: 50 Year
  Sex: Female

DRUGS (3)
  1. RAPAMUNE [Suspect]
     Indication: RENAL TRANSPLANT
     Dosage: 2 MG, 1X/DAY
     Route: 048
  2. GANODERMA LUCIDUM L. [Interacting]
     Dosage: 1 DF, 1X/DAY
     Route: 048
     Dates: start: 201401, end: 20140212
  3. ADVAGRAF [Interacting]
     Indication: RENAL TRANSPLANT
     Dosage: 3 MG, 1X/DAY
     Route: 048

REACTIONS (2)
  - Drug interaction [Recovering/Resolving]
  - Drug level below therapeutic [Recovering/Resolving]
